FAERS Safety Report 21116953 (Version 1)
Quarter: 2022Q3

REPORT INFORMATION
  Report Type: Spontaneous
  Country: US (occurrence: US)
  Receive Date: 20220722
  Receipt Date: 20220722
  Transmission Date: 20221027
  Serious: No
  Sender: FDA-Public Use
  Company Number: US-TEVA-2022-US-2053948

PATIENT
  Age: 82 Year
  Sex: Female

DRUGS (1)
  1. ALBUTEROL SULFATE [Suspect]
     Active Substance: ALBUTEROL SULFATE
     Indication: Asthma
     Dosage: 90 MCG/DOSE 2 PUFFS 4 TIMES DAILY AS NEEDED
     Route: 065

REACTIONS (3)
  - Product dose omission in error [Unknown]
  - Diabetic neuropathy [Unknown]
  - Visual impairment [Unknown]
